FAERS Safety Report 9403622 (Version 1)
Quarter: 2013Q3

REPORT INFORMATION
  Report Type: Spontaneous
  Country: US (occurrence: US)
  Receive Date: 20130717
  Receipt Date: 20130717
  Transmission Date: 20140515
  Serious: Yes (Hospitalization)
  Sender: FDA-Public Use
  Company Number: US-ASTRAZENECA-2013SE34786

PATIENT
  Age: 11483 Day
  Sex: Male
  Weight: 72.6 kg

DRUGS (3)
  1. SEROQUEL [Suspect]
     Indication: PSYCHOTIC DISORDER
     Route: 048
  2. SEROQUEL [Suspect]
     Indication: PSYCHOTIC DISORDER
     Route: 048
  3. SEROQUEL [Suspect]
     Indication: PSYCHOTIC DISORDER
     Dosage: DOSAGE TITRATED TO 300MG
     Route: 048

REACTIONS (3)
  - Adverse event [Unknown]
  - Akathisia [Not Recovered/Not Resolved]
  - Restlessness [Not Recovered/Not Resolved]
